FAERS Safety Report 7592531-0 (Version None)
Quarter: 2011Q2

REPORT INFORMATION
  Report Type: 
  Country: None (occurrence: None)
  Receive Date: 20110628
  Receipt Date: 20110614
  Transmission Date: 20111010
  Serious: Yes (Other)
  Sender: FDA-Public Use
  Company Number: 2011SP027634

PATIENT
  Age: 57 Year
  Sex: Female

DRUGS (1)
  1. TEMODAL [Suspect]
     Indication: ASTROCYTOMA
     Dosage: 120 MG, QD;

REACTIONS (8)
  - ANGIOEDEMA [None]
  - ANAPHYLACTIC REACTION [None]
  - VOMITING [None]
  - SKIN TOXICITY [None]
  - PRURITUS [None]
  - GENERALISED ERYTHEMA [None]
  - DYSPNOEA [None]
  - HYPOTENSION [None]
